FAERS Safety Report 5792070-3 (Version None)
Quarter: 2008Q2

REPORT INFORMATION
  Report Type: 
  Country: None (occurrence: None)
  Receive Date: 20080626
  Receipt Date: 20080321
  Transmission Date: 20081010
  Serious: No
  Sender: FDA-Public Use
  Company Number: US-ASTRAZENECA-2008UW05779

PATIENT
  Age: 16 Year
  Sex: Female
  Weight: 43.1 kg

DRUGS (3)
  1. PULMICORT [Suspect]
     Indication: ASTHMA
     Route: 055
  2. STEROIDS [Concomitant]
  3. ALBUTEROL [Concomitant]

REACTIONS (1)
  - TOOTH DISCOLOURATION [None]
